FAERS Safety Report 9548141 (Version 1)
Quarter: 2013Q2

REPORT INFORMATION
  Report Type: Spontaneous
  Country: US (occurrence: None)
  Receive Date: 20130627
  Receipt Date: 20130627
  Transmission Date: 20140414
  Serious: No
  Sender: FDA-Public Use
  Company Number: 1000043409

PATIENT
  Age: 75 Year
  Sex: Female

DRUGS (7)
  1. LINZESS (LINACLOTIDE) (290 MICROGRAM, CAPSULES) [Suspect]
     Indication: IRRITABLE BOWEL SYNDROME
     Route: 048
     Dates: start: 20130305, end: 20130308
  2. DIOVAN (VALSARTAN) (VALSARTAN) [Concomitant]
  3. NEXIUM (ESOMEPRAZOLE) (ESOMEPRAZOLE) [Concomitant]
  4. ATORVASTATIN (ATORVASTATIN) (ATORVASTATIN) [Concomitant]
  5. XANAX [Concomitant]
  6. ALIGN (BIFIFOBACTERIUM INFANTS) (BIFIDOBACTERIUM INFANTS) [Concomitant]
  7. STOOL SOFTENER NOS (STOOL SOFTENER NOS) (STOOL SOFTENER NOS) [Concomitant]

REACTIONS (1)
  - Diarrhoea [None]
